FAERS Safety Report 6241692-4 (Version None)
Quarter: 2009Q2

REPORT INFORMATION
  Report Type: 
  Country: None (occurrence: None)
  Receive Date: 20090623
  Receipt Date: 20090610
  Transmission Date: 20091009
  Serious: Yes (Other)
  Sender: FDA-Public Use
  Company Number: GR-ELI_LILLY_AND_COMPANY-GR200906002375

PATIENT
  Age: 36 Year
  Sex: Female

DRUGS (3)
  1. ZYPREXA [Suspect]
     Indication: PSYCHOTIC DISORDER
     Dosage: 30 MG, DAILY (1/D)
     Route: 048
     Dates: start: 20090527, end: 20090601
  2. REMERON [Concomitant]
     Indication: PSYCHOTIC DISORDER
     Dosage: 30 MG, DAILY (1/D)
     Route: 048
  3. PERPHENAZINE AND AMITRIPTYLINE HCL [Concomitant]
     Indication: PSYCHOTIC DISORDER
     Dosage: 24 MG, DAILY (1/D)
     Route: 048

REACTIONS (2)
  - DERMATITIS ALLERGIC [None]
  - OVERDOSE [None]
